FAERS Safety Report 15211648 (Version 1)
Quarter: 2018Q3

REPORT INFORMATION
  Report Type: Spontaneous
  Country: US (occurrence: US)
  Receive Date: 20180702
  Receipt Date: 20180702
  Transmission Date: 20181010
  Serious: Yes (Other)
  Sender: FDA-Public Use
  Company Number: None

PATIENT
  Age: 81 Year
  Sex: Female
  Weight: 58.97 kg

DRUGS (20)
  1. DERMEND MOISTURIZING ANTI?ITCH [Suspect]
     Active Substance: PRAMOXINE HYDROCHLORIDE
     Indication: PRURITUS
     Route: 061
     Dates: start: 20180610, end: 20180611
  2. DIAZEPAM. [Concomitant]
     Active Substance: DIAZEPAM
  3. NORCO [Concomitant]
     Active Substance: ACETAMINOPHEN\HYDROCODONE BITARTRATE
  4. DILTIAZEM ER [Concomitant]
     Active Substance: DILTIAZEM
  5. SILDENAFIL. [Concomitant]
     Active Substance: SILDENAFIL
  6. FUROSEMIDE. [Concomitant]
     Active Substance: FUROSEMIDE
  7. ELIQUIS [Concomitant]
     Active Substance: APIXABAN
  8. ADVAIR HFA [Concomitant]
     Active Substance: FLUTICASONE PROPIONATE\SALMETEROL XINAFOATE
  9. OMEGA 3 [Concomitant]
     Active Substance: OMEGA-3 FATTY ACIDS
  10. PRENATAL VITAMIN [Concomitant]
     Active Substance: VITAMINS
  11. NEXIUM [Concomitant]
     Active Substance: ESOMEPRAZOLE MAGNESIUM
  12. SPIRONOLACTONE. [Concomitant]
     Active Substance: SPIRONOLACTONE
  13. MONTELUKAST [Concomitant]
     Active Substance: MONTELUKAST SODIUM
  14. VITAMIN D [Concomitant]
     Active Substance: CHOLECALCIFEROL
  15. VITAMIN B COMPLEX [Concomitant]
     Active Substance: CYANOCOBALAMIN\DEXPANTHENOL\NIACINAMIDE\PYRIDOXINE HYDROCHLORIDE\RIBOFLAVIN 5^-PHOSPHATE SODIUM\THIAMINE HYDROCHLORIDE\VITAMIN B COMPLEX
  16. ASPIRIN. [Concomitant]
     Active Substance: ASPIRIN
  17. RAMIPRIL. [Concomitant]
     Active Substance: RAMIPRIL
  18. MAGNESIUM [Concomitant]
     Active Substance: MAGNESIUM
  19. CELEBREX [Concomitant]
     Active Substance: CELECOXIB
  20. TRAMADOL. [Concomitant]
     Active Substance: TRAMADOL

REACTIONS (2)
  - Blister [None]
  - Blister rupture [None]

NARRATIVE: CASE EVENT DATE: 20180611
